FAERS Safety Report 18186365 (Version 3)
Quarter: 2023Q1

REPORT INFORMATION
  Report Type: Report from Study
  Country: JP (occurrence: None)
  Receive Date: 20200824
  Receipt Date: 20230209
  Transmission Date: 20230418
  Serious: Yes (Other)
  Sender: FDA-Public Use
  Company Number: 2020SF05357

PATIENT
  Age: 77 Year
  Sex: Female

DRUGS (1)
  1. TAGRISSO [Suspect]
     Active Substance: OSIMERTINIB
     Indication: Non-small cell lung cancer
     Route: 048
     Dates: start: 20181121

REACTIONS (4)
  - Diarrhoea [Unknown]
  - Hepatic function abnormal [Unknown]
  - Paronychia [Unknown]
  - Xeroderma [Unknown]

NARRATIVE: CASE EVENT DATE: 20181201
